FAERS Safety Report 15760483 (Version 1)
Quarter: 2018Q4

REPORT INFORMATION
  Report Type: Spontaneous
  Country: US (occurrence: US)
  Receive Date: 20181206
  Receipt Date: 20181206
  Transmission Date: 20190205
  Serious: Yes (Hospitalization)
  Sender: FDA-Public Use
  Company Number: None

PATIENT
  Age: 54 Year
  Sex: Female

DRUGS (6)
  1. OCALIVA [Suspect]
     Active Substance: OBETICHOLIC ACID
     Indication: BILIARY CIRRHOSIS
     Route: 048
     Dates: start: 20170208
  2. FLUTICASONE. [Concomitant]
     Active Substance: FLUTICASONE
  3. OXYCODONE [Concomitant]
     Active Substance: OXYCODONE
  4. CEFPODXIME [Concomitant]
  5. DOK [Concomitant]
     Active Substance: DOCUSATE SODIUM
  6. HYDROMORHON [Concomitant]

REACTIONS (1)
  - Streptococcal infection [None]

NARRATIVE: CASE EVENT DATE: 201811
